FAERS Safety Report 6697558-9 (Version None)
Quarter: 2010Q2

REPORT INFORMATION
  Report Type: 
  Country: None (occurrence: None)
  Receive Date: 20100426
  Receipt Date: 20100407
  Transmission Date: 20101027
  Serious: No
  Sender: FDA-Public Use
  Company Number: US-ABBOTT-10P-163-0632391-00

PATIENT
  Sex: Female

DRUGS (2)
  1. AZMACORT [Suspect]
     Indication: ASTHMA
     Route: 055
  2. AZMACORT [Suspect]
     Dosage: UNKNOWN DOSE; STOPPED DUE TO INSURANCE COVERAGE ISSUES.
     Route: 055

REACTIONS (3)
  - BRONCHITIS [None]
  - COUGH [None]
  - NASOPHARYNGITIS [None]
